FAERS Safety Report 16512917 (Version 1)
Quarter: 2019Q3

REPORT INFORMATION
  Report Type: Spontaneous
  Country: AR (occurrence: AR)
  Receive Date: 20190702
  Receipt Date: 20190702
  Transmission Date: 20191004
  Serious: Yes (Other)
  Sender: FDA-Public Use
  Company Number: AR-PFIZER INC-2019277813

PATIENT
  Age: 67 Year
  Sex: Female

DRUGS (1)
  1. IBRANCE [Suspect]
     Active Substance: PALBOCICLIB
     Indication: BREAST CANCER METASTATIC
     Dosage: 125 MG, CYCLIC (DAILY, 3X1 SCHEME)
     Dates: start: 20180810

REACTIONS (10)
  - Seizure [Unknown]
  - Platelet count decreased [Unknown]
  - Limb injury [Unknown]
  - Red blood cell count decreased [Unknown]
  - Joint injury [Unknown]
  - Face injury [Unknown]
  - Fall [Unknown]
  - Gait inability [Unknown]
  - Hypoaesthesia [Unknown]
  - Muscle atrophy [Unknown]

NARRATIVE: CASE EVENT DATE: 201905
